FAERS Safety Report 5062473-3 (Version None)
Quarter: 2006Q3

REPORT INFORMATION
  Report Type: 
  Country: None (occurrence: None)
  Receive Date: 20060726
  Receipt Date: 20060717
  Transmission Date: 20061208
  Serious: Yes (Other)
  Sender: FDA-Public Use
  Company Number: EG-ABBOTT-06P-048-0338384-00

PATIENT
  Age: 46 Year
  Sex: Female

DRUGS (2)
  1. DEPAKENE [Suspect]
     Indication: EPILEPSY
     Route: 048
     Dates: start: 20060605
  2. DEPAKENE [Suspect]

REACTIONS (2)
  - GRAND MAL CONVULSION [None]
  - HYPOXIC ENCEPHALOPATHY [None]
